FAERS Safety Report 8831884 (Version 5)
Quarter: 2013Q1

REPORT INFORMATION
  Report Type: Spontaneous
  Country: US (occurrence: US)
  Receive Date: 20121008
  Receipt Date: 20130304
  Transmission Date: 20140127
  Serious: Yes (Hospitalization)
  Sender: FDA-Public Use
  Company Number: US-ELI_LILLY_AND_COMPANY-US201210000593

PATIENT
  Age: 84 Year
  Sex: Female
  Weight: 70.75 kg

DRUGS (19)
  1. FORTEO [Suspect]
     Indication: OSTEOPOROSIS
     Dosage: 20 UG, QD
     Route: 058
     Dates: start: 20120522, end: 20120813
  2. FORTEO [Suspect]
     Dosage: 20 UG, QD
     Route: 058
     Dates: start: 20120831
  3. FORTEO [Suspect]
     Dosage: 20 UG, QD
     Route: 058
  4. FORTEO [Suspect]
     Dosage: 20 UG, QD
     Route: 058
  5. FORTEO [Suspect]
     Dosage: 20 UG, QD
     Route: 058
  6. FORTEO [Suspect]
     Dosage: 20 UG, QD
  7. CALCIUM PLUS D3 [Concomitant]
  8. BISOPROLOL FUMARATE [Concomitant]
     Indication: BLOOD PRESSURE
     Dosage: 2.5 MG, QD
  9. PRILOSEC [Concomitant]
     Dosage: 20 MG, QD
  10. HYDROCODONE W/APAP [Concomitant]
     Dosage: 7.5-500 MG
  11. TYLENOL EXTRA STRENGTH [Concomitant]
  12. MIRALAX [Concomitant]
  13. CITRACAL                           /00751520/ [Concomitant]
     Dosage: 360 MG, QD
  14. ZEBETA [Concomitant]
     Dosage: UNK, QD
  15. GABAPENTIN [Concomitant]
     Indication: NEURALGIA
     Dosage: 100 MG, QD
  16. TYLENOL ARTHRITIS [Concomitant]
     Dosage: 2 PRN
  17. ALEVE [Concomitant]
     Dosage: UNK, PRN
  18. KCL [Concomitant]
  19. VITAMIN D [Concomitant]
     Dosage: 2000 U, QD

REACTIONS (13)
  - Osteoarthritis [Recovering/Resolving]
  - Osteoporosis [Recovering/Resolving]
  - Compression fracture [Recovering/Resolving]
  - Constipation [Unknown]
  - Arthritis [Unknown]
  - Dry eye [Unknown]
  - Abnormal sensation in eye [Unknown]
  - Foreign body sensation in eyes [Unknown]
  - Pain in extremity [Unknown]
  - Impaired healing [Unknown]
  - Drug ineffective [Unknown]
  - Eye disorder [Unknown]
  - Injection site pain [Unknown]
